FAERS Safety Report 23145184 (Version 2)
Quarter: 2023Q4

REPORT INFORMATION
  Report Type: Report from Study
  Country: FR (occurrence: FR)
  Receive Date: 20231103
  Receipt Date: 20231204
  Transmission Date: 20240109
  Serious: Yes (Death, Hospitalization, Other)
  Sender: FDA-Public Use
  Company Number: FR-Korea IPSEN-2023-24970

PATIENT

DRUGS (7)
  1. CABOZANTINIB [Suspect]
     Active Substance: CABOZANTINIB
     Indication: Metastatic carcinoid tumour
     Dosage: 60 MG, QD
     Route: 048
     Dates: start: 20230711, end: 20231027
  2. LOPERAMIDE [Concomitant]
     Active Substance: LOPERAMIDE
     Indication: Diarrhoea
     Dosage: 23 MG UPON REQUEST
     Route: 048
     Dates: start: 20230710
  3. MONTMORILLONITE [Concomitant]
     Active Substance: MONTMORILLONITE
     Indication: Diarrhoea
     Dosage: 3 BAGS, QD
     Route: 048
     Dates: start: 20230710
  4. NEFOPAM [Concomitant]
     Active Substance: NEFOPAM
     Dosage: IF NEEDED
  5. PHLOROGLUCINOL [Concomitant]
     Active Substance: PHLOROGLUCINOL
  6. TRAMADOL [Concomitant]
     Active Substance: TRAMADOL\TRAMADOL HYDROCHLORIDE
  7. PANTOPRAZOLE [Concomitant]
     Active Substance: PANTOPRAZOLE

REACTIONS (1)
  - Pulmonary arterial hypertension [Fatal]

NARRATIVE: CASE EVENT DATE: 20231024
